FAERS Safety Report 5801106-2 (Version None)
Quarter: 2008Q3

REPORT INFORMATION
  Report Type: 
  Country: None (occurrence: None)
  Receive Date: 20080707
  Receipt Date: 20080703
  Transmission Date: 20090109
  Serious: Yes (Death, Other)
  Sender: FDA-Public Use
  Company Number: CH-BRISTOL-MYERS SQUIBB COMPANY-14122873

PATIENT
  Age: 42 Year
  Sex: Female

DRUGS (4)
  1. BARACLUDE [Suspect]
     Indication: HEPATITIS VIRAL
     Route: 048
     Dates: start: 20061116, end: 20080128
  2. TRUVADA [Suspect]
     Indication: HIV INFECTION
     Route: 048
     Dates: start: 20080129, end: 20080208
  3. KALETRA [Suspect]
     Indication: HIV INFECTION
     Dosage: 200 MG LOPINAVIR/50 MG RITONAVIR.
     Route: 048
     Dates: start: 20080129, end: 20080208
  4. RETROVIR [Suspect]
     Indication: HIV INFECTION
     Dosage: STRENGTH-250MG, CAPSULES
     Route: 048
     Dates: start: 20080129, end: 20080208

REACTIONS (6)
  - ABORTION [None]
  - ABORTION SPONTANEOUS [None]
  - DERMATITIS ALLERGIC [None]
  - DRUG EXPOSURE DURING PREGNANCY [None]
  - INTRA-UTERINE DEATH [None]
  - PREGNANCY [None]
